FAERS Safety Report 7377499-4 (Version None)
Quarter: 2011Q1

REPORT INFORMATION
  Report Type: 
  Country: None (occurrence: None)
  Receive Date: 20110328
  Receipt Date: 20110322
  Transmission Date: 20110831
  Serious: Yes (Hospitalization)
  Sender: FDA-Public Use
  Company Number: PHHO2010CO19675

PATIENT
  Sex: Male
  Weight: 76.2 kg

DRUGS (22)
  1. BLINDED PLACEBO [Suspect]
     Dosage: CODE NOT BROKEN
     Route: 048
     Dates: start: 20090812, end: 20090923
  2. AMLODIPINE [Suspect]
     Indication: HYPERTENSION
     Dosage: UNK
     Route: 048
     Dates: start: 20101111, end: 20101203
  3. LOVASTATIN [Concomitant]
     Indication: DYSLIPIDAEMIA
  4. BLINDED ALISKIREN [Suspect]
     Dosage: CODE NOT BROKEN
     Route: 048
     Dates: start: 20090428, end: 20090618
  5. BLINDED ALISKIREN [Suspect]
     Dosage: CODE NOT BROKEN
     Route: 048
     Dates: start: 20090924, end: 20110313
  6. ENALAPRIL MALEATE [Concomitant]
     Indication: HYPERTENSION
     Dosage: UNK
     Dates: end: 20101203
  7. BLINDED NO TREATMENT RECEIVED [Suspect]
     Indication: CARDIOVASCULAR DISORDER
     Dosage: CODE NOT BROKEN
     Route: 048
     Dates: start: 20090326, end: 20090427
  8. BLINDED ALISKIREN [Suspect]
     Indication: CARDIOVASCULAR DISORDER
     Dosage: CODE NOT BROKEN
     Route: 048
     Dates: start: 20090326, end: 20090427
  9. BLINDED PLACEBO [Suspect]
     Indication: CARDIOVASCULAR DISORDER
     Dosage: CODE NOT BROKEN
     Route: 048
     Dates: start: 20090326, end: 20090427
  10. BLINDED PLACEBO [Suspect]
     Dosage: CODE NOT BROKEN
     Route: 048
     Dates: start: 20090428, end: 20090618
  11. VALSARTAN [Concomitant]
     Indication: HYPERTENSION
  12. BLINDED PLACEBO [Suspect]
     Dosage: NO TREATMENT
     Route: 048
     Dates: start: 20090619, end: 20090811
  13. METOPROLOL [Suspect]
     Indication: HYPERTENSION
     Dosage: 100 MG, QD
     Route: 048
     Dates: start: 20101117, end: 20101203
  14. BLINDED ALISKIREN [Suspect]
     Dosage: NO TREATMENT
     Route: 048
     Dates: start: 20090619, end: 20090811
  15. BLINDED NO TREATMENT RECEIVED [Suspect]
     Dosage: CODE NOT BROKEN
     Route: 048
     Dates: start: 20090812, end: 20090923
  16. ASPIRIN [Concomitant]
     Indication: CARDIOVASCULAR EVENT PROPHYLAXIS
  17. BLINDED NO TREATMENT RECEIVED [Suspect]
     Dosage: NO TREATMENT
     Route: 048
     Dates: start: 20090619, end: 20090811
  18. BLINDED PLACEBO [Suspect]
     Dosage: CODE NOT BROKEN
     Route: 048
     Dates: start: 20090924, end: 20110313
  19. CARVEDILOL [Concomitant]
     Indication: ANGINA PECTORIS
     Dosage: UNK
     Dates: end: 20101203
  20. BLINDED NO TREATMENT RECEIVED [Suspect]
     Dosage: CODE NOT BROKEN
     Route: 048
     Dates: start: 20090428, end: 20090618
  21. BLINDED ALISKIREN [Suspect]
     Dosage: CODE NOT BROKEN
     Route: 048
     Dates: start: 20090812, end: 20090923
  22. BLINDED NO TREATMENT RECEIVED [Suspect]
     Dosage: CODE NOT BROKEN
     Route: 048
     Dates: start: 20090924, end: 20110313

REACTIONS (4)
  - ANGINA PECTORIS [None]
  - DRUG INTERACTION [None]
  - BRADYCARDIA [None]
  - CARDIAC PACEMAKER INSERTION [None]
